FAERS Safety Report 16578152 (Version 1)
Quarter: 2019Q3

REPORT INFORMATION
  Report Type: Spontaneous
  Country: US (occurrence: US)
  Receive Date: 20190716
  Receipt Date: 20190716
  Transmission Date: 20191004
  Serious: No
  Sender: FDA-Public Use
  Company Number: US-PFIZER INC-2019298733

PATIENT
  Age: 59 Year
  Sex: Female
  Weight: 83.46 kg

DRUGS (1)
  1. GABAPENTIN. [Suspect]
     Active Substance: GABAPENTIN
     Indication: PAIN
     Dosage: UNK

REACTIONS (4)
  - Drug ineffective for unapproved indication [Unknown]
  - Influenza like illness [Unknown]
  - Off label use [Unknown]
  - Malaise [Unknown]
